FAERS Safety Report 24930370 (Version 1)
Quarter: 2025Q1

REPORT INFORMATION
  Report Type: Spontaneous
  Country: US (occurrence: US)
  Receive Date: 20250205
  Receipt Date: 20250205
  Transmission Date: 20250408
  Serious: Yes (Hospitalization, Other)
  Sender: AMERICAN REGENT
  Company Number: US-AMERICAN REGENT INC-2025000532

PATIENT
  Age: 43 Year
  Sex: Female
  Weight: 84.5 kg

DRUGS (2)
  1. VENOFER [Suspect]
     Active Substance: IRON SUCROSE
     Indication: Product used for unknown indication
     Route: 065
     Dates: start: 20241224
  2. MIRCERA [Suspect]
     Active Substance: METHOXY POLYETHYLENE GLYCOL-EPOETIN BETA
     Indication: Nephrogenic anaemia
     Dates: start: 20241214, end: 20250115

REACTIONS (1)
  - Drug hypersensitivity [Unknown]

NARRATIVE: CASE EVENT DATE: 20250115
